FAERS Safety Report 10606771 (Version 2)
Quarter: 2015Q1

REPORT INFORMATION
  Report Type: Spontaneous
  Country: PT (occurrence: PT)
  Receive Date: 20141125
  Receipt Date: 20150204
  Transmission Date: 20150720
  Serious: Yes (Death, Life-Threatening, Hospitalization, Disabling)
  Sender: FDA-Public Use
  Company Number: PT-MALLINCKRODT-T201404194

PATIENT
  Age: 74 Year
  Sex: Male

DRUGS (6)
  1. ESTRAMUSTINE [Concomitant]
     Active Substance: ESTRAMUSTINE
     Indication: PROSTATE CANCER METASTATIC
     Dosage: 200 MG, 3 IN 1 DAY
     Route: 048
     Dates: start: 20140731, end: 20141023
  2. ABIRATERONE ACETATE [Concomitant]
     Active Substance: ABIRATERONE ACETATE
     Indication: PROSTATE CANCER METASTATIC
     Dosage: 1000 MG, IN 1 DAY
     Dates: start: 20140513, end: 20140713
  3. PREDNISOLONE. [Concomitant]
     Active Substance: PREDNISOLONE
     Indication: PROSTATE CANCER METASTATIC
     Dosage: 10 MG
     Route: 058
     Dates: start: 20121011, end: 20141217
  4. VINORELBINE [Concomitant]
     Active Substance: VINORELBINE\VINORELBINE TARTRATE
     Indication: PROSTATE CANCER METASTATIC
     Dosage: 120 MG, 1 IN 1 WEEK
     Route: 048
     Dates: start: 20140731, end: 20141023
  5. EXALGO [Suspect]
     Active Substance: HYDROMORPHONE HYDROCHLORIDE
     Indication: BONE PAIN
     Dosage: 32 MG, IN 1 DAY
     Route: 048
     Dates: start: 20140630, end: 20141217
  6. ZOLADEX [Concomitant]
     Active Substance: GOSERELIN ACETATE
     Indication: PROSTATE CANCER METASTATIC
     Dosage: 10.8 MG
     Route: 058
     Dates: start: 20121011, end: 20141217

REACTIONS (3)
  - Altered state of consciousness [Fatal]
  - Speech disorder [Fatal]
  - Metastases to central nervous system [Fatal]

NARRATIVE: CASE EVENT DATE: 20141108
